FAERS Safety Report 7403906-4 (Version None)
Quarter: 2011Q1

REPORT INFORMATION
  Report Type: 
  Country: None (occurrence: None)
  Receive Date: 20110330
  Receipt Date: 20110323
  Transmission Date: 20110831
  Serious: Yes (Hospitalization)
  Sender: FDA-Public Use
  Company Number: 2010SP006068

PATIENT
  Age: 37 Year
  Sex: Female
  Weight: 104.3273 kg

DRUGS (2)
  1. NUVARING [Suspect]
     Indication: CONTRACEPTION
     Dates: start: 20070901, end: 20080201
  2. COUMADIN [Suspect]
     Indication: DEEP VEIN THROMBOSIS
     Dates: start: 20080101

REACTIONS (2)
  - DEEP VEIN THROMBOSIS [None]
  - ANTIPHOSPHOLIPID ANTIBODIES POSITIVE [None]
